FAERS Safety Report 6328780-9 (Version None)
Quarter: 2009Q3

REPORT INFORMATION
  Report Type: 
  Country: None (occurrence: None)
  Receive Date: 20090826
  Receipt Date: 20090817
  Transmission Date: 20100115
  Serious: Yes (Hospitalization)
  Sender: FDA-Public Use
  Company Number: JP-ASTRAZENECA-2009SE08694

PATIENT
  Sex: Female

DRUGS (6)
  1. COKENZEN [Suspect]
     Indication: HYPERTENSION
     Route: 048
     Dates: end: 20090701
  2. TEGRETOL [Suspect]
     Indication: EPILEPSY
     Route: 048
     Dates: end: 20090701
  3. ALEPSAL [Concomitant]
     Indication: EPILEPSY
     Route: 065
  4. LEVOTHYROX [Concomitant]
     Indication: HYPOTHYROIDISM
     Route: 065
  5. UN-ALFA [Concomitant]
     Indication: DRUG USE FOR UNKNOWN INDICATION
     Route: 065
  6. KEPPRA [Concomitant]
     Indication: EPILEPSY
     Route: 065
     Dates: end: 20090701

REACTIONS (4)
  - ANTICONVULSANT DRUG LEVEL INCREASED [None]
  - GENERAL PHYSICAL HEALTH DETERIORATION [None]
  - HYPONATRAEMIA [None]
  - MALAISE [None]
